FAERS Safety Report 5257407-2 (Version None)
Quarter: 2007Q1

REPORT INFORMATION
  Report Type: 
  Country: None (occurrence: None)
  Receive Date: 20070307
  Receipt Date: 20060814
  Transmission Date: 20070707
  Serious: No
  Sender: FDA-Public Use
  Company Number: US-GLAXOSMITHKLINE-A0613005A

PATIENT
  Age: 65 Year
  Sex: Female

DRUGS (3)
  1. REQUIP [Suspect]
     Indication: RESTLESS LEGS SYNDROME
     Dosage: 1TAB PER DAY
     Route: 048
     Dates: start: 20060501, end: 20060718
  2. AVALIDE [Concomitant]
  3. PRILOSEC [Concomitant]

REACTIONS (2)
  - MALAISE [None]
  - NAUSEA [None]
